FAERS Safety Report 6611696-8 (Version None)
Quarter: 2010Q1

REPORT INFORMATION
  Report Type: 
  Country: None (occurrence: None)
  Receive Date: 20100223
  Receipt Date: 20100217
  Transmission Date: 20100710
  Serious: Yes (Other)
  Sender: FDA-Public Use
  Company Number: 007191

PATIENT
  Sex: Female

DRUGS (2)
  1. CIMZIA [Suspect]
     Indication: CROHN'S DISEASE
     Dosage: (400 MG 1X/2 WEEKS SUBCUTANEOUS)
     Route: 058
  2. MINERAL TAB [Suspect]
     Dosage: (DAILY ORAL)
     Route: 048

REACTIONS (5)
  - BACTERIAL INFECTION [None]
  - FAECES DISCOLOURED [None]
  - FLATULENCE [None]
  - FUNGAL INFECTION [None]
  - HAEMOGLOBIN DECREASED [None]
